FAERS Safety Report 5730086-3 (Version None)
Quarter: 2008Q2

REPORT INFORMATION
  Report Type: 
  Country: None (occurrence: None)
  Receive Date: 20080507
  Receipt Date: 20080428
  Transmission Date: 20081010
  Serious: Yes (Hospitalization)
  Sender: FDA-Public Use
  Company Number: DK-JNJFOC-20080403875

PATIENT
  Sex: Male

DRUGS (6)
  1. REMICADE [Suspect]
     Dosage: 23 TREATMENTS
     Route: 042
  2. REMICADE [Suspect]
     Indication: ANKYLOSING SPONDYLITIS
     Route: 042
  3. ENBREL [Suspect]
     Indication: ANKYLOSING SPONDYLITIS
     Route: 058
  4. HUMIRA [Suspect]
     Indication: ANKYLOSING SPONDYLITIS
     Route: 058
  5. METHOTREXATE [Concomitant]
     Route: 048
  6. PREDNISOLON [Concomitant]

REACTIONS (1)
  - PULMONARY TUBERCULOSIS [None]
